FAERS Safety Report 10044989 (Version 1)
Quarter: 2014Q1

REPORT INFORMATION
  Report Type: Spontaneous
  Country: US (occurrence: None)
  Receive Date: 20140306
  Receipt Date: 20140306
  Transmission Date: 20141002
  Serious: Yes (Hospitalization)
  Sender: FDA-Public Use
  Company Number: 163-21880-13053165

PATIENT
  Age: 59 Year
  Sex: Female
  Weight: 64.41 kg

DRUGS (9)
  1. REVLIMID [Suspect]
     Indication: PLASMA CELL MYELOMA
     Dosage: 15MG, 1 IN 1D, PO
     Route: 048
     Dates: start: 201110
  2. PROTONIX (TABLETS) [Concomitant]
  3. NEURONTIN (GAAPENTIN) [Concomitant]
  4. ASPIRIN (ACETYLSALICYLIC ACID) [Concomitant]
  5. LAMICTAL (LAMOTRIGINE) (TABLETS) [Concomitant]
  6. CALCIUM CITRATE (CALCIUM CITRATE) [Concomitant]
  7. ESSENTIAL MEGA (ALL OTHER THERAPEUTIC PRODUCTS) (TABLETS) [Concomitant]
  8. FISH OIL OMEGA 3 (FISH OIL) [Concomitant]
  9. SUPER B COMPLEX (SUPER B 50 COMPLEX) [Concomitant]

REACTIONS (1)
  - Salmonellosis [None]
